FAERS Safety Report 4267289-3 (Version None)
Quarter: 2004Q1

REPORT INFORMATION
  Report Type: 
  Country: None (occurrence: None)
  Receive Date: 20040108
  Receipt Date: 20030716
  Transmission Date: 20041129
  Serious: Yes (Hospitalization, Disabling, Other)
  Sender: FDA-Public Use
  Company Number: WAES 0307USA02048

PATIENT
  Age: 46 Year
  Sex: Male
  Weight: 100 kg

DRUGS (7)
  1. PERCOCET [Suspect]
  2. ALCOHOL [Suspect]
  3. XANAX [Suspect]
  4. SOMA [Concomitant]
  5. ADVIL [Concomitant]
  6. VIOXX [Suspect]
     Indication: BACK PAIN
     Route: 048
     Dates: start: 20010101, end: 20020328
  7. AMBIEN [Suspect]

REACTIONS (30)
  - ABNORMAL BEHAVIOUR [None]
  - ACUTE MYOCARDIAL INFARCTION [None]
  - ARTHRALGIA [None]
  - ARTHROPOD STING [None]
  - ASPARTATE AMINOTRANSFERASE INCREASED [None]
  - BLOOD CHOLESTEROL INCREASED [None]
  - BLOOD PRESSURE DECREASED [None]
  - BLOOD TRIGLYCERIDES INCREASED [None]
  - CHEST PAIN [None]
  - COMPRESSION FRACTURE [None]
  - CORONARY ARTERY ATHEROSCLEROSIS [None]
  - DEPRESSION [None]
  - DIABETES MELLITUS [None]
  - DYSPEPSIA [None]
  - EJECTION FRACTION DECREASED [None]
  - GASTROOESOPHAGEAL REFLUX DISEASE [None]
  - HYPERCHOLESTEROLAEMIA [None]
  - HYPERHIDROSIS [None]
  - INCOHERENT [None]
  - INTENTIONAL OVERDOSE [None]
  - INTERVERTEBRAL DISC SPACE NARROWING [None]
  - MYOCARDIAL INFARCTION [None]
  - NAUSEA [None]
  - NEURAL TUBE DEFECT [None]
  - OSTEOARTHRITIS [None]
  - SOMNOLENCE [None]
  - STENT OCCLUSION [None]
  - SUICIDE ATTEMPT [None]
  - SWELLING FACE [None]
  - VOMITING [None]
